FAERS Safety Report 20816880 (Version 1)
Quarter: 2022Q2

REPORT INFORMATION
  Report Type: Spontaneous
  Country: FR (occurrence: FR)
  Receive Date: 20220512
  Receipt Date: 20220512
  Transmission Date: 20220721
  Serious: Yes (Other)
  Sender: FDA-Public Use
  Company Number: FR-MACLEODS PHARMACEUTICALS US LTD-MAC2022035511

PATIENT

DRUGS (2)
  1. LIDOCAINE [Suspect]
     Active Substance: LIDOCAINE
     Indication: Local anaesthesia
     Dosage: 2.0 MILLIGRAM/KILOGRAM
     Route: 008
  2. ROPIVACAINE [Suspect]
     Active Substance: ROPIVACAINE
     Indication: Local anaesthesia
     Dosage: UNK, SINGLE
     Route: 008

REACTIONS (6)
  - Tachycardia [Unknown]
  - Local anaesthetic systemic toxicity [Unknown]
  - Hypertension [Unknown]
  - Agitation [Unknown]
  - Myoclonus [Unknown]
  - Maternal exposure during pregnancy [Unknown]
